FAERS Safety Report 12475417 (Version 2)
Quarter: 2016Q2

REPORT INFORMATION
  Report Type: Spontaneous
  Country: IT (occurrence: IT)
  Receive Date: 20160617
  Receipt Date: 20160627
  Transmission Date: 20160815
  Serious: Yes (Hospitalization, Other)
  Sender: FDA-Public Use
  Company Number: IT-TEVA-668058ACC

PATIENT
  Age: 44 Year
  Sex: Male

DRUGS (8)
  1. CIPROFLOXACIN. [Suspect]
     Active Substance: CIPROFLOXACIN
     Indication: URINARY TRACT INFECTION
  2. DELORAZEPAM [Suspect]
     Active Substance: DELORAZEPAM
     Indication: ALCOHOL WITHDRAWAL SYNDROME
     Dosage: 9 MILLIGRAM DAILY; 9 MG PER DAY
  3. DELORAZEPAM [Suspect]
     Active Substance: DELORAZEPAM
     Dosage: 6 MILLIGRAM DAILY; TAPERED TO 6 MG PER DAY
  4. CARBAMAZEPINE. [Suspect]
     Active Substance: CARBAMAZEPINE
     Indication: SEIZURE
  5. THIAMINE HYDROCHLORIDE. [Suspect]
     Active Substance: THIAMINE HYDROCHLORIDE
     Indication: VITAMIN SUPPLEMENTATION
     Dosage: 100 MILLIGRAM DAILY; 100 MG DAILY
  6. POTASSIUM [Suspect]
     Active Substance: POTASSIUM
     Indication: HYPOKALAEMIA
     Route: 048
  7. CHOLECALCIFEROL [Suspect]
     Active Substance: CHOLECALCIFEROL
     Indication: VITAMIN D DEFICIENCY
     Dosage: 100000 IU
  8. LEVETIRACETAM. [Suspect]
     Active Substance: LEVETIRACETAM
     Indication: SEIZURE

REACTIONS (4)
  - Confabulation [Unknown]
  - Psychomotor hyperactivity [Unknown]
  - Sensory disturbance [Unknown]
  - Wernicke^s encephalopathy [Unknown]
